FAERS Safety Report 8263279-4 (Version None)
Quarter: 2012Q2

REPORT INFORMATION
  Report Type: 
  Country: None (occurrence: None)
  Receive Date: 20120405
  Receipt Date: 20120402
  Transmission Date: 20120825
  Serious: Yes (Other)
  Sender: FDA-Public Use
  Company Number: US-PFIZER INC-2012083628

PATIENT
  Sex: Female
  Weight: 63.492 kg

DRUGS (7)
  1. RANITIDINE [Concomitant]
     Indication: GASTROOESOPHAGEAL REFLUX DISEASE
     Dosage: UNK
  2. RANITIDINE [Concomitant]
     Indication: OESOPHAGEAL DISORDER
  3. PROZAC [Concomitant]
     Indication: DEPRESSION
     Dosage: UNK
  4. OMEPRAZOLE [Concomitant]
     Indication: OESOPHAGEAL DISORDER
  5. OMEPRAZOLE [Concomitant]
     Indication: GASTROOESOPHAGEAL REFLUX DISEASE
     Dosage: UNK
  6. LIPITOR [Suspect]
     Dosage: 10 MG, 1X/DAY
     Route: 048
  7. LIPITOR [Suspect]
     Indication: BLOOD CHOLESTEROL INCREASED
     Dosage: 20 MG, 1X/DAY
     Route: 048
     Dates: start: 20000101

REACTIONS (2)
  - BLOOD CHOLESTEROL INCREASED [None]
  - DEAFNESS [None]
